FAERS Safety Report 13312533 (Version 1)
Quarter: 2017Q1

REPORT INFORMATION
  Report Type: Spontaneous
  Country: US (occurrence: US)
  Receive Date: 20170309
  Receipt Date: 20170309
  Transmission Date: 20170428
  Serious: No
  Sender: FDA-Public Use
  Company Number: US-WARNER CHILCOTT, LLC-1064041

PATIENT
  Age: 88 Year
  Sex: Female

DRUGS (8)
  1. MOBIX [Concomitant]
     Active Substance: MELOXICAM
  2. ALPHAGAN P [Concomitant]
     Active Substance: BRIMONIDINE TARTRATE
  3. COENZYME Q10 [Concomitant]
     Active Substance: UBIDECARENONE
  4. LUMIGAN [Concomitant]
     Active Substance: BIMATOPROST
  5. BUPROPION. [Concomitant]
     Active Substance: BUPROPION
  6. ASACOL HD [Suspect]
     Active Substance: MESALAMINE
     Indication: COLITIS
     Route: 048
  7. FISH OIL [Concomitant]
     Active Substance: FISH OIL
  8. GLUCOSAMINE [Concomitant]
     Active Substance: GLUCOSAMINE

REACTIONS (2)
  - Medication residue present [Recovered/Resolved]
  - Pigmentation disorder [Not Recovered/Not Resolved]

NARRATIVE: CASE EVENT DATE: 2011
